FAERS Safety Report 19370973 (Version 2)
Quarter: 2021Q2

REPORT INFORMATION
  Report Type: Spontaneous
  Country: IE (occurrence: IE)
  Receive Date: 20210603
  Receipt Date: 20210622
  Transmission Date: 20210717
  Serious: Yes (Hospitalization, Other)
  Sender: FDA-Public Use
  Company Number: IE-MACLEODS PHARMACEUTICALS US LTD-MAC2021031321

PATIENT

DRUGS (2)
  1. VALSARTAN. [Suspect]
     Active Substance: VALSARTAN
     Dosage: UNK PRIOR TO CONCEPTION AND THROUGHOUT HER PREGNANCY, AT THIRD TRIMESTER OF PREGNANCY, EXFORGE (AMLO
     Route: 065
  2. FLUOXETINE [Concomitant]
     Active Substance: FLUOXETINE HYDROCHLORIDE
     Indication: DEPRESSION
     Dosage: 60 MILLIGRAM
     Route: 065

REACTIONS (3)
  - Oligohydramnios [Unknown]
  - Premature baby [Unknown]
  - Maternal exposure during pregnancy [Unknown]
